FAERS Safety Report 8151694-9 (Version None)
Quarter: 2012Q1

REPORT INFORMATION
  Report Type: 
  Country: None (occurrence: None)
  Receive Date: 20120221
  Receipt Date: 20120209
  Transmission Date: 20120608
  Serious: Yes (Other)
  Sender: FDA-Public Use
  Company Number: DE-AMGEN-DEUSP2012003053

PATIENT
  Age: 49 Year

DRUGS (2)
  1. BETA BLOCKING AGENTS [Suspect]
     Dosage: UNK
  2. ENBREL [Suspect]
     Indication: PSORIASIS
     Dosage: 25 MG, FOR YEARS

REACTIONS (5)
  - MYOCARDIAL INFARCTION [None]
  - PSORIASIS [None]
  - DRUG EFFECT DECREASED [None]
  - CONDITION AGGRAVATED [None]
  - DRUG INTERACTION [None]
